FAERS Safety Report 18290186 (Version 1)
Quarter: 2020Q3

REPORT INFORMATION
  Report Type: Spontaneous
  Country: US (occurrence: US)
  Receive Date: 20200921
  Receipt Date: 20200921
  Transmission Date: 20201103
  Serious: Yes (Death, Hospitalization, Other)
  Sender: FDA-Public Use
  Company Number: US-PURDUE-USA-2020-0166903

PATIENT
  Age: 64 Year
  Sex: Male

DRUGS (17)
  1. OXYCODONE HCL TABLETS (RHODES 91?490) [Suspect]
     Active Substance: OXYCODONE HYDROCHLORIDE
     Indication: PAIN IN EXTREMITY
     Dosage: 20 MG, Q12H
     Route: 048
  2. BENADRYL [Concomitant]
     Active Substance: DIPHENHYDRAMINE HYDROCHLORIDE
     Indication: PRODUCT USED FOR UNKNOWN INDICATION
     Dosage: 25 MG, PRN
     Route: 065
  3. OMEPRAZOLE SODIUM [Concomitant]
     Active Substance: OMEPRAZOLE SODIUM
     Indication: PRODUCT USED FOR UNKNOWN INDICATION
     Dosage: 40 MG, DAILY
     Route: 065
  4. OXYCODONE HCL TABLETS (RHODES 91?490) [Suspect]
     Active Substance: OXYCODONE HYDROCHLORIDE
     Indication: MUSCULOSKELETAL PAIN
     Dosage: 20 MG, QID
     Route: 048
  5. ATORVASTATIN [Concomitant]
     Active Substance: ATORVASTATIN
     Indication: PRODUCT USED FOR UNKNOWN INDICATION
     Dosage: 80 MG, DAILY
     Route: 048
  6. OXYCONTIN [Suspect]
     Active Substance: OXYCODONE HYDROCHLORIDE
     Indication: PAIN MANAGEMENT
     Dosage: UNK, Q8H
     Route: 048
  7. PERCOCET                           /00446701/ [Suspect]
     Active Substance: ACETAMINOPHEN\OXYCODONE HYDROCHLORIDE\OXYCODONE TEREPHTHALATE
     Indication: PAIN MANAGEMENT
     Route: 065
  8. TYLENOL [Suspect]
     Active Substance: ACETAMINOPHEN
     Indication: PAIN MANAGEMENT
     Dosage: NOT MORE THAN 3 GM PER DAY
     Route: 065
  9. ALBUTEROL                          /00139501/ [Concomitant]
     Active Substance: ALBUTEROL
     Indication: PRODUCT USED FOR UNKNOWN INDICATION
     Route: 065
  10. ALLOPURINOL. [Concomitant]
     Active Substance: ALLOPURINOL
     Indication: PRODUCT USED FOR UNKNOWN INDICATION
     Dosage: 300 MG, DAILY
     Route: 048
  11. PERCODAN [Suspect]
     Active Substance: ASPIRIN\OXYCODONE HYDROCHLORIDE
     Indication: PAIN MANAGEMENT
     Route: 065
  12. IBUPROFEN. [Concomitant]
     Active Substance: IBUPROFEN
     Indication: PRODUCT USED FOR UNKNOWN INDICATION
     Route: 065
  13. ASPIRIN. [Concomitant]
     Active Substance: ASPIRIN
     Indication: PRODUCT USED FOR UNKNOWN INDICATION
     Dosage: 81 MG, DAILY
     Route: 048
  14. BUMETANIDE. [Concomitant]
     Active Substance: BUMETANIDE
     Indication: PRODUCT USED FOR UNKNOWN INDICATION
     Dosage: 1 MG, QD PRN
     Route: 048
  15. DULOXETINE. [Concomitant]
     Active Substance: DULOXETINE
     Indication: PRODUCT USED FOR UNKNOWN INDICATION
     Dosage: 30 MG, DAILY
     Route: 048
  16. OXYCODONE HCL TABLETS (RHODES 91?490) [Suspect]
     Active Substance: OXYCODONE HYDROCHLORIDE
     Dosage: 10 MG, Q4H
     Route: 048
  17. ENALAPRIL [Concomitant]
     Active Substance: ENALAPRIL
     Indication: HYPERTENSION
     Dosage: 5 MG, DAILY
     Route: 065

REACTIONS (44)
  - Drug dependence [Unknown]
  - Disorientation [Unknown]
  - Dysphonia [Unknown]
  - Renal function test abnormal [Unknown]
  - Restless legs syndrome [Unknown]
  - Oedema peripheral [Unknown]
  - Drug withdrawal syndrome [Unknown]
  - Cerebrovascular accident [Fatal]
  - Drug abuse [Unknown]
  - Confusional state [Unknown]
  - Prostate cancer [Unknown]
  - Neuropathy peripheral [Unknown]
  - Inadequate analgesia [Unknown]
  - Hyperlipidaemia [Unknown]
  - Diarrhoea [Unknown]
  - Tonsillectomy [Unknown]
  - Wheezing [Unknown]
  - Arthritis [Unknown]
  - Pain in extremity [Unknown]
  - Gout [Unknown]
  - Arthralgia [Unknown]
  - Emphysema [Unknown]
  - Chronic sinusitis [Unknown]
  - Product prescribing issue [Unknown]
  - Tobacco abuse [Fatal]
  - Cough [Unknown]
  - Fluid retention [Unknown]
  - Pain [Unknown]
  - Overdose [Unknown]
  - Appendicectomy [Unknown]
  - Unresponsive to stimuli [Unknown]
  - Dyspnoea exertional [Unknown]
  - Bronchitis [Unknown]
  - Skin lesion [Unknown]
  - Lymphadenopathy [Unknown]
  - Seasonal allergy [Unknown]
  - Primary hypogonadism [Unknown]
  - Cognitive disorder [Unknown]
  - Gastric ulcer [Unknown]
  - Chronic obstructive pulmonary disease [Unknown]
  - Joint swelling [Unknown]
  - Essential hypertension [Unknown]
  - Blood testosterone decreased [Unknown]
  - Osteoporosis [Unknown]

NARRATIVE: CASE EVENT DATE: 2016
